FAERS Safety Report 12556798 (Version 1)
Quarter: 2016Q3

REPORT INFORMATION
  Report Type: Spontaneous
  Country: JP (occurrence: JP)
  Receive Date: 20160714
  Receipt Date: 20160714
  Transmission Date: 20161109
  Serious: Yes (Life-Threatening, Hospitalization, Other)
  Sender: FDA-Public Use
  Company Number: JP-ABBVIE-16K-087-1552094-00

PATIENT
  Age: 76 Year
  Sex: Male
  Weight: 69 kg

DRUGS (6)
  1. DICLOFENAC SODIUM. [Concomitant]
     Active Substance: DICLOFENAC SODIUM
     Indication: RHEUMATOID ARTHRITIS
     Route: 048
     Dates: start: 20070810
  2. METHOTREXATE. [Concomitant]
     Active Substance: METHOTREXATE
     Indication: PRODUCT USED FOR UNKNOWN INDICATION
  3. ALDIOXA [Concomitant]
     Active Substance: ALDIOXA
     Indication: GASTRITIS
     Route: 048
     Dates: start: 20070810
  4. HUMIRA [Suspect]
     Active Substance: ADALIMUMAB
     Indication: RHEUMATOID ARTHRITIS
     Route: 058
     Dates: start: 20100115, end: 20151211
  5. POTASSIUM CITRATE W/SODIUM CITRATE [Concomitant]
     Active Substance: POTASSIUM CITRATE\SODIUM CITRATE
     Indication: HYPERURICAEMIA
     Route: 048
     Dates: start: 20070810
  6. RHEUMATREX [Suspect]
     Active Substance: METHOTREXATE SODIUM
     Indication: RHEUMATOID ARTHRITIS
     Route: 048
     Dates: start: 20070810

REACTIONS (8)
  - Lymphoma [Unknown]
  - Gastritis erosive [Unknown]
  - Meningioma benign [Unknown]
  - Cerebral calcification [Unknown]
  - Interstitial lung disease [Unknown]
  - Pneumonitis [Unknown]
  - Hepatic neoplasm [Recovered/Resolved]
  - Immunosuppression [Unknown]

NARRATIVE: CASE EVENT DATE: 20160106
